FAERS Safety Report 4989849-4 (Version None)
Quarter: 2006Q2

REPORT INFORMATION
  Report Type: 
  Country: None (occurrence: None)
  Receive Date: 20060421
  Receipt Date: 20060406
  Transmission Date: 20061013
  Serious: Yes (Other)
  Sender: FDA-Public Use
  Company Number: 2006BH006530

PATIENT
  Age: 71 Year
  Sex: Male
  Weight: 61 kg

DRUGS (24)
  1. HUMAN ALBUMIN GRIFOLS 20% [Suspect]
     Indication: CHRONIC LYMPHOCYTIC LEUKAEMIA
     Dosage: SEE IMAGE
     Route: 042
     Dates: start: 20050517, end: 20050517
  2. HUMAN ALBUMIN GRIFOLS 20% [Suspect]
     Indication: HAEMOLYSIS
     Dosage: SEE IMAGE
     Route: 042
     Dates: start: 20050517, end: 20050517
  3. HUMAN ALBUMIN GRIFOLS 20% [Suspect]
     Indication: CHRONIC LYMPHOCYTIC LEUKAEMIA
     Dosage: SEE IMAGE
     Route: 042
     Dates: start: 20050518, end: 20050518
  4. HUMAN ALBUMIN GRIFOLS 20% [Suspect]
     Indication: HAEMOLYSIS
     Dosage: SEE IMAGE
     Route: 042
     Dates: start: 20050518, end: 20050518
  5. HUMAN ALBUMIN GRIFOLS 20% [Suspect]
     Indication: CHRONIC LYMPHOCYTIC LEUKAEMIA
     Dosage: SEE IMAGE
     Route: 042
     Dates: start: 20050519, end: 20050519
  6. HUMAN ALBUMIN GRIFOLS 20% [Suspect]
     Indication: HAEMOLYSIS
     Dosage: SEE IMAGE
     Route: 042
     Dates: start: 20050519, end: 20050519
  7. HUMAN ALBUMIN GRIFOLS 20% [Suspect]
     Indication: CHRONIC LYMPHOCYTIC LEUKAEMIA
     Dosage: SEE IMAGE
     Route: 042
     Dates: start: 20050520, end: 20050520
  8. HUMAN ALBUMIN GRIFOLS 20% [Suspect]
     Indication: HAEMOLYSIS
     Dosage: SEE IMAGE
     Route: 042
     Dates: start: 20050520, end: 20050520
  9. HUMAN ALBUMIN GRIFOLS 20% [Suspect]
     Indication: CHRONIC LYMPHOCYTIC LEUKAEMIA
     Dosage: SEE IMAGE
     Route: 042
     Dates: start: 20050521, end: 20050521
  10. HUMAN ALBUMIN GRIFOLS 20% [Suspect]
     Indication: HAEMOLYSIS
     Dosage: SEE IMAGE
     Route: 042
     Dates: start: 20050521, end: 20050521
  11. HUMAN ALBUMIN GRIFOLS 20% [Suspect]
     Indication: CHRONIC LYMPHOCYTIC LEUKAEMIA
     Dosage: SEE IMAGE
     Route: 042
     Dates: start: 20050526, end: 20050526
  12. HUMAN ALBUMIN GRIFOLS 20% [Suspect]
     Indication: HAEMOLYSIS
     Dosage: SEE IMAGE
     Route: 042
     Dates: start: 20050526, end: 20050526
  13. HUMAN ALBUMIN GRIFOLS 20% [Suspect]
     Indication: CHRONIC LYMPHOCYTIC LEUKAEMIA
     Dosage: SEE IMAGE
     Route: 042
     Dates: start: 20050529, end: 20050529
  14. HUMAN ALBUMIN GRIFOLS 20% [Suspect]
     Indication: HAEMOLYSIS
     Dosage: SEE IMAGE
     Route: 042
     Dates: start: 20050529, end: 20050529
  15. HUMAN ALBUMIN GRIFOLS 20% [Suspect]
     Indication: CHRONIC LYMPHOCYTIC LEUKAEMIA
     Dosage: SEE IMAGE
     Route: 042
     Dates: start: 20050531, end: 20050531
  16. HUMAN ALBUMIN GRIFOLS 20% [Suspect]
     Indication: HAEMOLYSIS
     Dosage: SEE IMAGE
     Route: 042
     Dates: start: 20050531, end: 20050531
  17. HUMAN ALBUMIN GRIFOLS 20% [Suspect]
     Indication: CHRONIC LYMPHOCYTIC LEUKAEMIA
     Dosage: SEE IMAGE
     Route: 042
     Dates: start: 20050601, end: 20050601
  18. HUMAN ALBUMIN GRIFOLS 20% [Suspect]
     Indication: HAEMOLYSIS
     Dosage: SEE IMAGE
     Route: 042
     Dates: start: 20050601, end: 20050601
  19. HUMAN ALBUMIN GRIFOLS 20% [Suspect]
     Indication: CHRONIC LYMPHOCYTIC LEUKAEMIA
     Dosage: SEE IMAGE
     Route: 042
     Dates: start: 20050602, end: 20050602
  20. HUMAN ALBUMIN GRIFOLS 20% [Suspect]
     Indication: HAEMOLYSIS
     Dosage: SEE IMAGE
     Route: 042
     Dates: start: 20050602, end: 20050602
  21. HUMAN ALBUMIN GRIFOLS 20% [Suspect]
  22. IMMUNE GLOBULIN INTRAVENOUS (HUMAN) [Suspect]
     Indication: CHRONIC LYMPHOCYTIC LEUKAEMIA
     Dates: start: 20050513, end: 20050602
  23. DIPYRIDAMOLE [Suspect]
     Dosage: 4 PACK
     Dates: start: 20031101, end: 20051101
  24. RED BLOOD CELLS [Suspect]
     Dosage: 29 PACK
     Dates: start: 20031101, end: 20051101

REACTIONS (2)
  - HEPATITIS C [None]
  - INFUSION RELATED REACTION [None]
